FAERS Safety Report 5062006-1 (Version None)
Quarter: 2006Q3

REPORT INFORMATION
  Report Type: 
  Country: None (occurrence: None)
  Receive Date: 20060719
  Receipt Date: 20060719
  Transmission Date: 20061208
  Serious: Yes (Disabling)
  Sender: FDA-Public Use
  Company Number: None

PATIENT
  Sex: Male
  Weight: 83.2804 kg

DRUGS (1)
  1. SILDENAFIL CITRATE [Suspect]
     Dosage: 25 MF AS NEEDED ORAL
     Route: 048
     Dates: start: 20050614, end: 20060302

REACTIONS (2)
  - RETINAL VEIN OCCLUSION [None]
  - VISION BLURRED [None]
